FAERS Safety Report 6552582-1 (Version None)
Quarter: 2010Q1

REPORT INFORMATION
  Report Type: 
  Country: None (occurrence: None)
  Receive Date: 20100121
  Receipt Date: 20100112
  Transmission Date: 20100710
  Serious: Yes (Other)
  Sender: FDA-Public Use
  Company Number: FABR-1001098

PATIENT
  Age: 67 Year
  Sex: Female
  Weight: 100 kg

DRUGS (2)
  1. FABRAZYME [Suspect]
     Indication: FABRY'S DISEASE
     Dosage: 30 MG, Q2W, INTRAVENOUS;  INTRAVENOUS
     Route: 042
     Dates: start: 20090901, end: 20091201
  2. FABRAZYME [Suspect]
     Indication: FABRY'S DISEASE
     Dosage: 30 MG, Q2W, INTRAVENOUS;  INTRAVENOUS
     Route: 042
     Dates: start: 20050426

REACTIONS (2)
  - FALL [None]
  - TENDON RUPTURE [None]
